FAERS Safety Report 7954641-5 (Version None)
Quarter: 2011Q4

REPORT INFORMATION
  Report Type: 
  Country: None (occurrence: None)
  Receive Date: 20111202
  Receipt Date: 20111128
  Transmission Date: 20120403
  Serious: Yes (Death, Hospitalization, Other)
  Sender: FDA-Public Use
  Company Number: PHHY2011JP94312

PATIENT
  Sex: Male
  Weight: 53 kg

DRUGS (10)
  1. HERBESSOR [Concomitant]
     Dosage: 200 MG, UNK
     Route: 048
  2. FEMARA [Suspect]
     Indication: BREAST CANCER
     Dosage: 2.5 MG, DAILY
     Route: 048
     Dates: start: 20100712
  3. PROCYLIN [Concomitant]
     Dosage: 60 UG, UNK
     Route: 048
  4. ACTOS [Concomitant]
     Dosage: 15 MG, UNK
     Route: 048
  5. LANIRAPID [Concomitant]
     Dosage: 0.05 MG, UNK
     Route: 048
  6. ASPIRIN [Concomitant]
     Dosage: 100 MG, UNK
     Route: 048
  7. ISOSORBIDE DINITRATE [Concomitant]
     Dosage: 40 MG, UNK
     Route: 048
  8. FAMOTIDINE [Concomitant]
     Dosage: 40 MG, UNK
     Route: 048
  9. SUCRALFATE [Concomitant]
     Dosage: 3 G, UNK
     Route: 048
  10. WARFARIN SODIUM [Concomitant]
     Dosage: 0.5 MG, UNK
     Route: 048

REACTIONS (9)
  - MALAISE [None]
  - OXYGEN SATURATION DECREASED [None]
  - BLOOD PRESSURE DECREASED [None]
  - RESPIRATORY FAILURE [None]
  - CARDIO-RESPIRATORY ARREST [None]
  - DEPRESSED LEVEL OF CONSCIOUSNESS [None]
  - PNEUMONIA BACTERIAL [None]
  - DYSPNOEA [None]
  - C-REACTIVE PROTEIN INCREASED [None]
